FAERS Safety Report 23405899 (Version 1)
Quarter: 2024Q1

REPORT INFORMATION
  Report Type: Spontaneous
  Country: US (occurrence: US)
  Receive Date: 20240116
  Receipt Date: 20240116
  Transmission Date: 20240409
  Serious: No
  Sender: FDA-Public Use
  Company Number: US-HALOZYME THERAPEUTICS, INC.-2023-US-HYL-01738

PATIENT

DRUGS (1)
  1. HYLENEX RECOMBINANT [Suspect]
     Active Substance: HYALURONIDASE (HUMAN RECOMBINANT)
     Indication: Dermal filler overcorrection
     Dosage: SHE RECEIVED MULTIPLE INJECTIONS OF HYLENEX STARTING IN FEBRUARY OF 2023, OVER A PERIOD OF MULTIPLE
     Dates: start: 202302, end: 2023

REACTIONS (2)
  - Swelling face [Not Recovered/Not Resolved]
  - Off label use [None]

NARRATIVE: CASE EVENT DATE: 20230201
